FAERS Safety Report 11415766 (Version 6)
Quarter: 2017Q4

REPORT INFORMATION
  Report Type: Spontaneous
  Country: US (occurrence: US)
  Receive Date: 20150825
  Receipt Date: 20171113
  Transmission Date: 20180320
  Serious: Yes (Hospitalization)
  Sender: FDA-Public Use
  Company Number: US-PFIZER INC-2015277761

PATIENT
  Age: 85 Year
  Sex: Female

DRUGS (11)
  1. LATANOPROST. [Suspect]
     Active Substance: LATANOPROST
     Indication: GLAUCOMA
     Dosage: UNK, 2X/DAY
     Dates: start: 201407, end: 201507
  2. TIMOLOL. [Suspect]
     Active Substance: TIMOLOL
     Indication: GLAUCOMA
     Dosage: UNK, 2X/DAY
     Dates: start: 201408, end: 20150727
  3. TIMOLOL. [Suspect]
     Active Substance: TIMOLOL
     Dosage: UNK, 2X/DAY
     Dates: start: 201407, end: 201507
  4. XALATAN [Concomitant]
     Active Substance: LATANOPROST
     Dosage: UNK UNK, 1X/DAY (NIGHT)
     Dates: start: 1950
  5. LATANOPROST. [Suspect]
     Active Substance: LATANOPROST
     Dosage: UNK UNK, 1X/DAY
     Dates: start: 201407
  6. TIMOPTIC [Concomitant]
     Active Substance: TIMOLOL MALEATE
     Dosage: UNK
     Dates: start: 20150728
  7. ARTIFICIAL TEARS [Concomitant]
     Active Substance: GLYCERIN\HYPROMELLOSES\POLYETHYLENE GLYCOL 400
     Dosage: UNK
  8. LATANOPROST. [Suspect]
     Active Substance: LATANOPROST
     Dosage: UNK UNK, 2X/DAY
     Dates: start: 201408, end: 20150727
  9. XALATAN [Concomitant]
     Active Substance: LATANOPROST
     Indication: GLAUCOMA
     Dosage: UNK
     Dates: start: 20150728
  10. RESTASIS [Concomitant]
     Active Substance: CYCLOSPORINE
     Dosage: UNK, 2X/DAY
  11. GENTEAL MILD [Concomitant]
     Active Substance: HYPROMELLOSE 2910 (4000 MPA.S)
     Dosage: UNK

REACTIONS (6)
  - Product use issue [Recovered/Resolved]
  - Eye pain [Recovered/Resolved]
  - Dry eye [Unknown]
  - Lacrimation increased [Recovered/Resolved]
  - Rhinorrhoea [Recovered/Resolved]
  - Eye irritation [Recovered/Resolved]

NARRATIVE: CASE EVENT DATE: 201408
